FAERS Safety Report 10725115 (Version 1)
Quarter: 2015Q1

REPORT INFORMATION
  Report Type: Spontaneous
  Country: US (occurrence: None)
  Receive Date: 20150116
  Receipt Date: 20150116
  Transmission Date: 20150721
  Serious: Yes (Hospitalization)
  Sender: FDA-Public Use
  Company Number: DEP_02446_2015

PATIENT
  Age: 73 Year
  Sex: Male
  Weight: 77.11 kg

DRUGS (6)
  1. GRALISE [Suspect]
     Active Substance: GABAPENTIN
     Indication: OFF LABEL USE
     Dosage: DF
     Dates: start: 20141011, end: 20141021
  2. OXYCONTIN [Concomitant]
     Active Substance: OXYCODONE HYDROCHLORIDE
  3. FENTANYL. [Concomitant]
     Active Substance: FENTANYL
  4. TRAMADOL [Concomitant]
     Active Substance: TRAMADOL
  5. NEURONTIN [Suspect]
     Active Substance: GABAPENTIN
     Indication: DIABETIC NEUROPATHY
     Dosage: STARTED WEANING OFF OF GABAPENTIN, DF, PO
     Route: 048
     Dates: start: 20141021, end: 20141203
  6. GRALISE [Suspect]
     Active Substance: GABAPENTIN
     Indication: NEUROPATHY PERIPHERAL
     Dosage: DF
     Dates: start: 20141011, end: 20141021

REACTIONS (12)
  - Condition aggravated [None]
  - Hallucination [None]
  - Product substitution issue [None]
  - Fall [None]
  - Tremor [None]
  - Myalgia [None]
  - Disorientation [None]
  - Prescribed overdose [None]
  - Muscular weakness [None]
  - Back pain [None]
  - Somnolence [None]
  - Fatigue [None]

NARRATIVE: CASE EVENT DATE: 201410
